FAERS Safety Report 6032784-3 (Version None)
Quarter: 2009Q1

REPORT INFORMATION
  Report Type: 
  Country: None (occurrence: None)
  Receive Date: 20090107
  Receipt Date: 20090107
  Transmission Date: 20090719
  Serious: Yes (Other)
  Sender: FDA-Public Use
  Company Number: None

PATIENT
  Sex: Female
  Weight: 68.0396 kg

DRUGS (2)
  1. NIACIN [Suspect]
     Indication: ARTERIOSCLEROSIS
     Dosage: 1000 MG. BID PO
     Route: 048
     Dates: start: 20081104, end: 20081118
  2. NIACIN [Suspect]
     Indication: HYPERLIPIDAEMIA
     Dosage: 1000 MG. BID PO
     Route: 048
     Dates: start: 20081104, end: 20081118

REACTIONS (6)
  - ANOREXIA [None]
  - BLOOD CREATININE INCREASED [None]
  - BLOOD UREA INCREASED [None]
  - FATIGUE [None]
  - TRANSAMINASES INCREASED [None]
  - WEIGHT DECREASED [None]
